FAERS Safety Report 12232170 (Version 2)
Quarter: 2016Q2

REPORT INFORMATION
  Report Type: Spontaneous
  Country: US (occurrence: US)
  Receive Date: 20160401
  Receipt Date: 20160428
  Transmission Date: 20160815
  Serious: Yes (Other)
  Sender: FDA-Public Use
  Company Number: US-009507513-1603USA012438

PATIENT
  Age: 74 Year
  Sex: Female

DRUGS (8)
  1. VITAMIN D [Concomitant]
     Active Substance: CHOLECALCIFEROL
     Indication: BONE DISORDER
     Dosage: 1000 IU ONCE A DAY
     Dates: start: 201504
  2. IBRANCE [Concomitant]
     Active Substance: PALBOCICLIB
     Dosage: 125 MG, QD
  3. CYCLOBENZAPRINE HYDROCHLORIDE. [Concomitant]
     Active Substance: CYCLOBENZAPRINE HYDROCHLORIDE
     Indication: PROPHYLAXIS
     Dosage: 10 MG, ONCE PER DAY
  4. IBRANCE [Concomitant]
     Active Substance: PALBOCICLIB
     Indication: METASTASES TO SPINE
     Dosage: 125 MG, QD
     Route: 048
     Dates: start: 201504
  5. HYZAAR [Suspect]
     Active Substance: HYDROCHLOROTHIAZIDE\LOSARTAN POTASSIUM
     Indication: HYPERTENSION
     Dosage: 25 MG, ONCE PER DAY
     Route: 048
  6. IBRANCE [Concomitant]
     Active Substance: PALBOCICLIB
     Dosage: 100 MG, QD
     Route: 048
  7. XGEVA [Concomitant]
     Active Substance: DENOSUMAB
     Indication: BONE DISORDER
     Dosage: SHOT IN ARM ONCE A MONTH
     Dates: start: 201504
  8. CALCIUM (UNSPECIFIED) [Concomitant]
     Active Substance: CALCIUM
     Indication: BONE DISORDER
     Dosage: 500 MG, ONCE A DAY
     Dates: start: 201504

REACTIONS (7)
  - Metastases to spine [Unknown]
  - Fatigue [Not Recovered/Not Resolved]
  - Alopecia [Not Recovered/Not Resolved]
  - Vision blurred [Unknown]
  - Conjunctivitis viral [Unknown]
  - Dysgeusia [Not Recovered/Not Resolved]
  - Muscle spasms [Unknown]

NARRATIVE: CASE EVENT DATE: 201410
